FAERS Safety Report 23509674 (Version 1)
Quarter: 2024Q1

REPORT INFORMATION
  Report Type: Spontaneous
  Country: GB (occurrence: GB)
  Receive Date: 20240210
  Receipt Date: 20240210
  Transmission Date: 20240410
  Serious: Yes (Disabling, Other)
  Sender: FDA-Public Use
  Company Number: None

PATIENT
  Age: 91 Year
  Sex: Male
  Weight: 72 kg

DRUGS (21)
  1. CLARITHROMYCIN [Suspect]
     Active Substance: CLARITHROMYCIN
     Dosage: (ANTIBIOTIC) STOP ATORVA,
     Route: 065
     Dates: start: 20240125
  2. MACROGOL COMPOUND [Concomitant]
     Dosage: SACHETS  MIXED WITH WATER / JUICE (T,
     Dates: start: 20231207, end: 20240106
  3. FENTANYL [Concomitant]
     Active Substance: FENTANYL\FENTANYL CITRATE
     Dosage: APPLY ONE PATCH, CHANGE EVERY THREE DAYS (STRONG PAINKILLER),
     Dates: start: 20240109, end: 20240123
  4. ALLOPURINOL [Concomitant]
     Active Substance: ALLOPURINOL
     Dates: start: 20230510
  5. PHOSEX [Concomitant]
     Dates: start: 20240125
  6. ALFACALCIDOL [Concomitant]
     Active Substance: ALFACALCIDOL
     Dosage: Y (VITAMIN D),
     Dates: start: 20221116
  7. NITROGLYCERIN [Concomitant]
     Active Substance: NITROGLYCERIN
     Dosage: ONE OR TWO SPRAYS UNDER THE TONGUE IF NEEDED : ...
     Route: 060
     Dates: start: 20230515
  8. CETIRIZINE [Concomitant]
     Active Substance: CETIRIZINE HYDROCHLORIDE
     Dosage: AS NEEDED (ANTIHISTAMINE ANTI-,
     Dates: start: 20221116, end: 20240118
  9. ISOSORBIDE MONONITRATE [Concomitant]
     Active Substance: ISOSORBIDE MONONITRATE
     Dosage: IN THE MORNING (ISM-NITRATE ANTI-AN,
     Dates: start: 20230523, end: 20240118
  10. BUDESONIDE [Concomitant]
     Active Substance: BUDESONIDE
     Dosage: ONE SPRAY SNIFFED IN EACH NOSTRIL TWICE A DAY
     Route: 045
     Dates: start: 20231121, end: 20231221
  11. ACETAMINOPHEN [Concomitant]
     Active Substance: ACETAMINOPHEN
     Dosage: TWO TABLETS UP TO FOUR TIMES A DAY AS NEEDED (P...
     Dates: start: 20240125
  12. ATORVASTATIN [Concomitant]
     Active Substance: ATORVASTATIN
     Indication: Blood cholesterol increased
     Dosage: AT NIGHT,
     Dates: start: 20230515
  13. HYDROCORTISONE [Concomitant]
     Active Substance: HYDROCORTISONE
     Dosage: APPLY THINLY TWICE A DAY (MILD STEROID ANTI-INF...
     Dates: start: 20230904
  14. OMEPRAZOLE [Concomitant]
     Active Substance: OMEPRAZOLE
     Dosage: TO REDUCE ACID IN STOMACH,
     Dates: start: 20221116
  15. ASPIRIN [Concomitant]
     Active Substance: ASPIRIN
     Dosage: WITH FOOD (ANTI-CLOTTING ANTI-,
     Dates: start: 20230510
  16. MORPHINE SULFATE [Concomitant]
     Active Substance: MORPHINE SULFATE
     Dosage: 2.5-5ML DOSE 2-4 HOURLY AS NEEDED (PAINKILLER),
     Dates: start: 20240125, end: 20240201
  17. BISOPROLOL [Concomitant]
     Active Substance: BISOPROLOL\BISOPROLOL FUMARATE
     Dosage: (BETA-BLOCKER FOR HEART),
     Dates: start: 20230515
  18. EMLA [Concomitant]
     Active Substance: LIDOCAINE\PRILOCAINE
     Dosage: APPLY IF NEEDED (LIDOCAINE/ PRILOCAINE TO NUMB ...
     Dates: start: 20230922
  19. FUROSEMIDE [Concomitant]
     Active Substance: FUROSEMIDE
     Dosage: Y (TO REMOVE FLUID EXCESS),
     Dates: start: 20221116
  20. FYBOGEL [Concomitant]
     Active Substance: HERBALS\PLANTAGO OVATA SEED
     Dosage: SACHET Y (TO ADD SOFT BULK TO STOOLS),
     Dates: start: 20221116
  21. TAMSULOSIN HYDROCHLORIDE [Concomitant]
     Active Substance: TAMSULOSIN HYDROCHLORIDE
     Dosage: (TO IMPROVE URINE FLOW),
     Dates: start: 20240125

REACTIONS (3)
  - Mania [Recovered/Resolved]
  - Nightmare [Recovered/Resolved]
  - Confusional state [Recovered/Resolved]

NARRATIVE: CASE EVENT DATE: 20240126
